FAERS Safety Report 12712282 (Version 1)
Quarter: 2016Q3

REPORT INFORMATION
  Report Type: Spontaneous
  Country: US (occurrence: US)
  Receive Date: 20160902
  Receipt Date: 20160902
  Transmission Date: 20161109
  Serious: No
  Sender: FDA-Public Use
  Company Number: US-BAYER-2016-163018

PATIENT
  Sex: Male

DRUGS (10)
  1. ALEVE [Suspect]
     Active Substance: NAPROXEN SODIUM
     Indication: PAIN
     Dosage: UNK
  2. GABAPENTIN. [Concomitant]
     Active Substance: GABAPENTIN
     Indication: POST-TRAUMATIC PAIN
     Dosage: 1500 MG, QD
     Dates: start: 2016
  3. LYRICA [Concomitant]
     Active Substance: PREGABALIN
     Indication: POST HERPETIC NEURALGIA
  4. GABAPENTIN. [Concomitant]
     Active Substance: GABAPENTIN
     Indication: POST HERPETIC NEURALGIA
     Dosage: 600 MG, QD
  5. GABAPENTIN. [Concomitant]
     Active Substance: GABAPENTIN
     Indication: POST-TRAUMATIC PAIN
     Dosage: 900 MG, QD
  6. GABAPENTIN. [Concomitant]
     Active Substance: GABAPENTIN
     Indication: POST-TRAUMATIC PAIN
     Dosage: 1200 MG, QD
  7. SONATA [Concomitant]
     Active Substance: ZALEPLON
     Indication: SLEEP DISORDER THERAPY
     Dosage: UNK
     Dates: start: 2016
  8. GABAPENTIN. [Concomitant]
     Active Substance: GABAPENTIN
     Indication: POST-TRAUMATIC PAIN
     Dosage: 300 MG, QD
  9. TYLENOL [Concomitant]
     Active Substance: ACETAMINOPHEN
     Indication: PAIN
     Dosage: UNK
  10. LYRICA [Concomitant]
     Active Substance: PREGABALIN
     Indication: HERPES ZOSTER
     Dosage: 300 MG, UNK
     Dates: start: 2016

REACTIONS (3)
  - Drug effect incomplete [None]
  - Muscle spasms [None]
  - Insomnia [None]
